FAERS Safety Report 21279018 (Version 1)
Quarter: 2022Q3

REPORT INFORMATION
  Report Type: Spontaneous
  Country: AR (occurrence: AR)
  Receive Date: 20220901
  Receipt Date: 20220901
  Transmission Date: 20221026
  Serious: Yes (Other)
  Sender: FDA-Public Use
  Company Number: AR-PFIZER INC-PV202200052857

PATIENT
  Age: 65 Year
  Sex: Female
  Weight: 80 kg

DRUGS (2)
  1. ENBREL [Suspect]
     Active Substance: ETANERCEPT
     Indication: Product used for unknown indication
     Dosage: UNK
     Route: 065
     Dates: start: 20180101
  2. METHOTREXATE [Concomitant]
     Active Substance: METHOTREXATE
     Dosage: UNK

REACTIONS (24)
  - C-reactive protein increased [Unknown]
  - Loss of personal independence in daily activities [Unknown]
  - Fracture [Unknown]
  - Enthesophyte [Unknown]
  - Bone fragmentation [Unknown]
  - Degenerative bone disease [Unknown]
  - Joint impingement [Unknown]
  - Ligament sprain [Unknown]
  - Localised oedema [Unknown]
  - Bone marrow oedema [Unknown]
  - Tendon disorder [Unknown]
  - Osteoarthritis [Unknown]
  - Foot deformity [Unknown]
  - Antinuclear antibody positive [Unknown]
  - Rheumatoid factor positive [Unknown]
  - Anti-cyclic citrullinated peptide antibody positive [Unknown]
  - Blood triglycerides increased [Unknown]
  - Osteopenia [Unknown]
  - Arthritis [Unknown]
  - Arthralgia [Unknown]
  - Mobility decreased [Unknown]
  - Gait disturbance [Unknown]
  - Vitamin D decreased [Unknown]
  - Urine abnormality [Unknown]

NARRATIVE: CASE EVENT DATE: 20200930
